FAERS Safety Report 9426310 (Version 2)
Quarter: 2013Q4

REPORT INFORMATION
  Report Type: Report from Study
  Country: IN (occurrence: IN)
  Receive Date: 20130730
  Receipt Date: 20131003
  Transmission Date: 20140711
  Serious: Yes (Death)
  Sender: FDA-Public Use
  Company Number: IN-BRISTOL-MYERS SQUIBB COMPANY-19131176

PATIENT
  Age: 61 Year
  Sex: Male

DRUGS (4)
  1. APIXABAN [Suspect]
     Indication: THROMBOSIS PROPHYLAXIS
     Route: 048
     Dates: start: 20101022, end: 20130710
  2. METOPROLOL [Concomitant]
     Dosage: SUPERMET XL
     Dates: start: 20101022, end: 20130710
  3. METOPROLOL [Concomitant]
     Dosage: TABS
     Dates: start: 20101022, end: 20130710
  4. TAMIFLU [Concomitant]
     Dosage: TABS
     Dates: start: 20090413, end: 20130710

REACTIONS (1)
  - Death [Fatal]
